FAERS Safety Report 10084400 (Version 1)
Quarter: 2014Q2

REPORT INFORMATION
  Report Type: Spontaneous
  Country: US (occurrence: US)
  Receive Date: 20140417
  Receipt Date: 20140417
  Transmission Date: 20141212
  Serious: Yes (Other)
  Sender: FDA-Public Use
  Company Number: US-INCYTE CORPORATION-2014IN001005

PATIENT
  Sex: Female

DRUGS (7)
  1. JAKAFI [Suspect]
     Dosage: 15 MG, BID
     Route: 048
  2. SERTRALINE [Concomitant]
  3. SENSIPAR [Concomitant]
  4. GABAPENTIN [Concomitant]
  5. CALCIUM CITRATE [Concomitant]
  6. AMLODIPINE [Concomitant]
  7. ALEVE [Concomitant]

REACTIONS (1)
  - Limb operation [Unknown]
